FAERS Safety Report 18652197 (Version 2)
Quarter: 2021Q1

REPORT INFORMATION
  Report Type: Spontaneous
  Country: US (occurrence: US)
  Receive Date: 20201222
  Receipt Date: 20210201
  Transmission Date: 20210419
  Serious: Yes (Hospitalization)
  Sender: FDA-Public Use
  Company Number: US-ELI_LILLY_AND_COMPANY-US202012010608

PATIENT
  Age: 79 Year
  Sex: Male
  Weight: 94.6 kg

DRUGS (1)
  1. BAMLANIVIMAB 700MG [Suspect]
     Active Substance: BAMLANIVIMAB
     Indication: COVID-19
     Dosage: 700 MG, SINGLE
     Route: 042
     Dates: start: 20201206, end: 20201206

REACTIONS (6)
  - Lethargy [Unknown]
  - Fluid intake reduced [Unknown]
  - Acute kidney injury [Unknown]
  - Metabolic acidosis [Unknown]
  - Abdominal pain lower [Unknown]
  - Sepsis [Unknown]

NARRATIVE: CASE EVENT DATE: 20201210
